FAERS Safety Report 5505888-9 (Version None)
Quarter: 2007Q4

REPORT INFORMATION
  Report Type: 
  Country: None (occurrence: None)
  Receive Date: 20071102
  Receipt Date: 20071019
  Transmission Date: 20080405
  Serious: Yes (Hospitalization)
  Sender: FDA-Public Use
  Company Number: DE-GENENTECH-250644

PATIENT
  Sex: Female
  Weight: 52.7 kg

DRUGS (3)
  1. BEVACIZUMAB [Suspect]
     Indication: OVARIAN CANCER
     Route: 042
     Dates: start: 20070619
  2. CARBOPLATIN [Suspect]
     Indication: OVARIAN CANCER
     Route: 042
     Dates: start: 20070619
  3. PACLITAXEL [Suspect]
     Indication: DRUG USE FOR UNKNOWN INDICATION
     Dates: start: 20070619

REACTIONS (1)
  - INTESTINAL PROLAPSE [None]
